FAERS Safety Report 9492101 (Version 1)
Quarter: 2013Q3

REPORT INFORMATION
  Report Type: Spontaneous
  Country: ES (occurrence: GB)
  Receive Date: 20130830
  Receipt Date: 20130830
  Transmission Date: 20140515
  Serious: Yes (Other)
  Sender: FDA-Public Use
  Company Number: GB-FRI-1000048365

PATIENT
  Sex: Female

DRUGS (1)
  1. ACLIDINIUM [Suspect]
     Indication: ASTHMA
     Route: 055

REACTIONS (1)
  - Bronchospasm [Unknown]
